FAERS Safety Report 7179668-5 (Version None)
Quarter: 2010Q4

REPORT INFORMATION
  Report Type: 
  Country: None (occurrence: None)
  Receive Date: 20101221
  Receipt Date: 20100909
  Transmission Date: 20110411
  Serious: Yes (Hospitalization)
  Sender: FDA-Public Use
  Company Number: DE-ROCHE-727143

PATIENT
  Sex: Male
  Weight: 85.2 kg

DRUGS (8)
  1. KEVATRIL [Suspect]
     Indication: ANTIEMETIC SUPPORTIVE CARE
     Route: 042
     Dates: start: 20100120, end: 20100318
  2. RITUXIMAB [Suspect]
     Indication: CHRONIC LYMPHOCYTIC LEUKAEMIA
     Route: 042
     Dates: start: 20100119, end: 20100318
  3. BENDAMUSTINE [Suspect]
     Indication: CHRONIC LYMPHOCYTIC LEUKAEMIA
     Route: 042
     Dates: start: 20100119, end: 20100318
  4. PREDNISOLONE [Suspect]
     Route: 048
     Dates: start: 20100119, end: 20100318
  5. ALLOPURINOL [Suspect]
     Route: 048
     Dates: start: 20100119, end: 20100318
  6. VERGENTAN [Suspect]
     Indication: ANTIEMETIC SUPPORTIVE CARE
     Route: 048
     Dates: start: 20100122, end: 20100318
  7. TAVEGIL [Concomitant]
     Dates: start: 20100119
  8. RANITIDINE HCL [Concomitant]
     Dates: start: 20100119

REACTIONS (2)
  - INTERSTITIAL LUNG DISEASE [None]
  - PULMONARY SEPSIS [None]
